FAERS Safety Report 9136999 (Version 2)
Quarter: 2015Q1

REPORT INFORMATION
  Report Type: Spontaneous
  Country: TR (occurrence: TR)
  Receive Date: 20130304
  Receipt Date: 20150109
  Transmission Date: 20150721
  Serious: Yes (Death, Hospitalization)
  Sender: FDA-Public Use
  Company Number: PHHY2013TR020939

PATIENT
  Age: 31 Year
  Sex: Male

DRUGS (1)
  1. AMOXICILLIN-CLAVULANIC ACID [Suspect]
     Active Substance: AMOXICILLIN\CLAVULANIC ACID
     Indication: INFLUENZA
     Route: 065

REACTIONS (12)
  - Eosinophilia [Fatal]
  - Rash maculo-papular [Fatal]
  - Loss of consciousness [Fatal]
  - Leukocytosis [Fatal]
  - Drug reaction with eosinophilia and systemic symptoms [Fatal]
  - Retinal exudates [Fatal]
  - Pyrexia [Fatal]
  - Liver injury [Fatal]
  - Lymphadenopathy [Fatal]
  - Retinopathy [Fatal]
  - Vision blurred [Fatal]
  - Hepatitis [Fatal]
